FAERS Safety Report 9459695 (Version 1)
Quarter: 2013Q3

REPORT INFORMATION
  Report Type: Spontaneous
  Country: US (occurrence: US)
  Receive Date: 20130815
  Receipt Date: 20130815
  Transmission Date: 20140515
  Serious: Yes (Hospitalization)
  Sender: FDA-Public Use
  Company Number: US-PERRIGO-13US008187

PATIENT
  Age: 65 Year
  Sex: Female

DRUGS (1)
  1. ACETAMINOPHEN-ASPIRIN-CAFFEINE 1T1 [Suspect]
     Indication: MIGRAINE
     Dosage: 6 TABLETS IN 12 TO 14 HOURS
     Route: 048
     Dates: start: 20130730, end: 20130730

REACTIONS (7)
  - Altered state of consciousness [Recovering/Resolving]
  - Tonic clonic movements [Recovered/Resolved]
  - Convulsion [Recovered/Resolved]
  - Cerebrovascular accident [Recovered/Resolved]
  - Vomiting [Recovered/Resolved]
  - Incoherent [Recovered/Resolved]
  - Overdose [Recovered/Resolved]
